FAERS Safety Report 5489485-X (Version None)
Quarter: 2007Q4

REPORT INFORMATION
  Report Type: 
  Country: None (occurrence: None)
  Receive Date: 20071018
  Receipt Date: 20070621
  Transmission Date: 20080405
  Serious: Yes (Other)
  Sender: FDA-Public Use
  Company Number: US-AVENTIS-200711531US

PATIENT
  Sex: Male
  Weight: 138.26 kg

DRUGS (8)
  1. LANTUS [Suspect]
  2. HUMALOG [Concomitant]
  3. PROPRANOLOL [Concomitant]
  4. ZETIA [Concomitant]
  5. ASPIRIN [Concomitant]
  6. LEVOCARNITINE [Concomitant]
     Dosage: DOSE: 330 MG X 3
  7. UNKNOWN DRUG [Concomitant]
  8. NIACIN [Concomitant]
     Dosage: DOSE: UNK

REACTIONS (1)
  - WEIGHT INCREASED [None]
